FAERS Safety Report 19669029 (Version 1)
Quarter: 2021Q3

REPORT INFORMATION
  Report Type: Spontaneous
  Country: US (occurrence: US)
  Receive Date: 20210806
  Receipt Date: 20210806
  Transmission Date: 20211014
  Serious: No
  Sender: FDA-Public Use
  Company Number: US-SAREPTA THERAPEUTICS INC.-SRP2021-001472

PATIENT
  Age: 2 Year
  Sex: Male

DRUGS (2)
  1. AMONDYS 45 [Suspect]
     Active Substance: CASIMERSEN
     Dosage: 400 MILLIGRAM, WEEKLY
     Route: 042
     Dates: start: 20210606
  2. AMONDYS 45 [Suspect]
     Active Substance: CASIMERSEN
     Indication: DUCHENNE MUSCULAR DYSTROPHY
     Dosage: 400 MILLIGRAM, WEEKLY
     Route: 042
     Dates: start: 2021, end: 202105

REACTIONS (5)
  - Product dose omission issue [Unknown]
  - Poor venous access [Recovered/Resolved]
  - Product dose omission issue [Unknown]
  - Infusion site extravasation [Recovered/Resolved]
  - Poor venous access [Recovered/Resolved]

NARRATIVE: CASE EVENT DATE: 202105
